FAERS Safety Report 15374846 (Version 5)
Quarter: 2018Q4

REPORT INFORMATION
  Report Type: Spontaneous
  Country: BR (occurrence: BR)
  Receive Date: 20180912
  Receipt Date: 20181206
  Transmission Date: 20190204
  Serious: Yes (Hospitalization, Other)
  Sender: FDA-Public Use
  Company Number: BR-PFIZER INC-2018361948

PATIENT
  Age: 58 Year
  Sex: Female

DRUGS (2)
  1. SUTENT [Suspect]
     Active Substance: SUNITINIB MALATE
     Dosage: UNK
  2. SUTENT [Suspect]
     Active Substance: SUNITINIB MALATE
     Indication: RENAL CANCER
     Dosage: 50 MG, CYCLIC, TWO WEEKS AND THEN REST ONE WEEK
     Dates: start: 201808

REACTIONS (9)
  - Renal injury [Recovered/Resolved]
  - Gingival disorder [Recovered/Resolved]
  - Sensation of foreign body [Recovered/Resolved]
  - Alopecia [Recovered/Resolved]
  - Gingival pain [Recovered/Resolved]
  - Pyrexia [Recovered/Resolved]
  - Diarrhoea [Recovered/Resolved]
  - Renal failure [Recovered/Resolved]
  - Retching [Recovered/Resolved]
